FAERS Safety Report 9684889 (Version 1)
Quarter: 2013Q4

REPORT INFORMATION
  Report Type: Spontaneous
  Country: US (occurrence: US)
  Receive Date: 20131113
  Receipt Date: 20131113
  Transmission Date: 20140711
  Serious: No
  Sender: FDA-Public Use
  Company Number: US-009507513-1311USA002908

PATIENT
  Age: 49 Year
  Sex: Female
  Weight: 58.96 kg

DRUGS (2)
  1. NUVARING [Suspect]
     Indication: CONTRACEPTION
     Dosage: 3 WEEKS, 1 WEEK RING FREE BREAK
     Route: 067
     Dates: start: 20131104
  2. METFORMIN [Concomitant]
     Dosage: METFORMIN 2X

REACTIONS (2)
  - Menstrual disorder [Unknown]
  - Hypomenorrhoea [Unknown]
